FAERS Safety Report 25112313 (Version 1)
Quarter: 2025Q1

REPORT INFORMATION
  Report Type: Spontaneous
  Country: US (occurrence: US)
  Receive Date: 20250324
  Receipt Date: 20250324
  Transmission Date: 20250408
  Serious: No
  Sender: UCB
  Company Number: US-UCBSA-2024019913

PATIENT
  Age: 70 Year
  Sex: Female

DRUGS (1)
  1. BRIVIACT [Suspect]
     Active Substance: BRIVARACETAM
     Indication: Product used for unknown indication
     Dosage: 150 MILLIGRAM, 2X/DAY (BID)
     Dates: start: 20240401

REACTIONS (5)
  - Trigeminal nerve disorder [Unknown]
  - Gait disturbance [Unknown]
  - Memory impairment [Unknown]
  - Overdose [Unknown]
  - Product use issue [Unknown]

NARRATIVE: CASE EVENT DATE: 20240401
